FAERS Safety Report 7459665-2 (Version None)
Quarter: 2011Q2

REPORT INFORMATION
  Report Type: 
  Country: None (occurrence: None)
  Receive Date: 20110505
  Receipt Date: 20110502
  Transmission Date: 20111010
  Serious: Yes (Death, Other)
  Sender: FDA-Public Use
  Company Number: PHHY2011NL31352

PATIENT
  Sex: Male

DRUGS (4)
  1. ZOMETA [Suspect]
     Dosage: 4MG/5ML, ONCE EVERY 28 DAYS
     Route: 042
     Dates: start: 20110313
  2. OXICONTIN [Concomitant]
     Indication: PAIN
     Dosage: 5 MG, UNK
  3. ZOMETA [Suspect]
     Dosage: 4MG/5ML, ONCE EVERY 28 DAYS
     Route: 042
     Dates: start: 20110413
  4. ZOMETA [Suspect]
     Indication: PROSTATE CANCER METASTATIC
     Dosage: 4MG/5ML, ONCE EVERY 28 DAYS
     Route: 042
     Dates: start: 20080321

REACTIONS (2)
  - DEATH [None]
  - NEOPLASM MALIGNANT [None]
